FAERS Safety Report 11915014 (Version 1)
Quarter: 2016Q1

REPORT INFORMATION
  Report Type: Spontaneous
  Country: CA (occurrence: CA)
  Receive Date: 20160113
  Receipt Date: 20160113
  Transmission Date: 20160526
  Serious: Yes (Life-Threatening, Other)
  Sender: FDA-Public Use
  Company Number: CA-TEVA-624155USA

PATIENT
  Age: 14 Year
  Sex: Female
  Weight: 43 kg

DRUGS (6)
  1. CISPLATIN. [Concomitant]
     Active Substance: CISPLATIN
     Dosage: 27 MILLIGRAM DAILY;
     Route: 042
     Dates: start: 20151221, end: 20151225
  2. APREPITANT. [Concomitant]
     Active Substance: APREPITANT
  3. TEVA-ETOPOSIDE [Suspect]
     Active Substance: ETOPOSIDE
     Dosage: 136 MILLIGRAM DAILY; PRESCRIBED FOR 6 DAYS
     Route: 041
     Dates: end: 20151226
  4. ONDANSETRON [Concomitant]
     Active Substance: ONDANSETRON
  5. DIMENHYDRINATE. [Concomitant]
     Active Substance: DIMENHYDRINATE
  6. TEVA-ETOPOSIDE [Suspect]
     Active Substance: ETOPOSIDE
     Indication: GERM CELL NEOPLASM
     Route: 041
     Dates: start: 20151221, end: 20151221

REACTIONS (7)
  - Dyspnoea [Recovered/Resolved]
  - Rash macular [Recovered/Resolved]
  - Anaphylactic reaction [Recovered/Resolved]
  - Emotional distress [Recovered/Resolved]
  - Erythema [Recovered/Resolved]
  - Face oedema [Recovered/Resolved]
  - Cough [Recovered/Resolved]

NARRATIVE: CASE EVENT DATE: 20151221
